FAERS Safety Report 8480809-8 (Version None)
Quarter: 2012Q3

REPORT INFORMATION
  Report Type: 
  Country: None (occurrence: None)
  Receive Date: 20120702
  Receipt Date: 20120622
  Transmission Date: 20120928
  Serious: Yes (Hospitalization)
  Sender: FDA-Public Use
  Company Number: US-BAYER-2012-041943

PATIENT
  Age: 41 Year
  Sex: Female
  Weight: 58.957 kg

DRUGS (1)
  1. YAZ [Suspect]
     Dosage: UNK
     Dates: start: 20070301, end: 20071001

REACTIONS (2)
  - COLITIS ISCHAEMIC [None]
  - INJURY [None]
